FAERS Safety Report 23392278 (Version 1)
Quarter: 2024Q1

REPORT INFORMATION
  Report Type: Spontaneous
  Country: US (occurrence: US)
  Receive Date: 20240111
  Receipt Date: 20240111
  Transmission Date: 20240410
  Serious: No
  Sender: FDA-Public Use
  Company Number: US-REGENERON PHARMACEUTICALS, INC.-2023-067070

PATIENT
  Sex: Female

DRUGS (2)
  1. EYLEA [Suspect]
     Active Substance: AFLIBERCEPT
     Indication: Retinal vein occlusion
     Dosage: UNK, Q4W (EVERY 4 WEEKS) IN RIGHT EYE, FORMULATION: UNKNOWN
     Dates: start: 202201
  2. EYLEA [Suspect]
     Active Substance: AFLIBERCEPT
     Indication: Macular oedema
     Dosage: UNK, Q6W (EVERY 6 WEEKS) IN RIGHT EYE, FORMULATION: UNKNOWN

REACTIONS (6)
  - Visual impairment [Recovered/Resolved]
  - Contusion [Unknown]
  - Swelling [Unknown]
  - Glycosylated haemoglobin increased [Unknown]
  - Weight decreased [Unknown]
  - Eye pain [Recovered/Resolved]
